FAERS Safety Report 20358085 (Version 2)
Quarter: 2022Q1

REPORT INFORMATION
  Report Type: Report from Study
  Country: CN (occurrence: CN)
  Receive Date: 20220120
  Receipt Date: 20220210
  Transmission Date: 20220423
  Serious: Yes (Hospitalization)
  Sender: FDA-Public Use
  Company Number: CN-PFIZER INC-202200079366

PATIENT
  Age: 55 Year
  Sex: Male

DRUGS (14)
  1. PACLITAXEL [Suspect]
     Active Substance: PACLITAXEL
     Indication: Non-small cell lung cancer
     Dosage: 200 MG/M2, EVERY 3 WEEKS
     Route: 042
     Dates: start: 20210714, end: 20210714
  2. PACLITAXEL [Suspect]
     Active Substance: PACLITAXEL
     Dosage: 200 MG/M2, EVERY 3 WEEKS
     Route: 042
     Dates: start: 20210804, end: 20210804
  3. PACLITAXEL [Suspect]
     Active Substance: PACLITAXEL
     Dosage: 200 MG/M2, EVERY 3 WEEKS
     Route: 042
     Dates: start: 20210826, end: 20210826
  4. PACLITAXEL [Suspect]
     Active Substance: PACLITAXEL
     Dosage: 200 MG/M2, EVERY 3 WEEKS
     Route: 042
     Dates: start: 20210916, end: 20210916
  5. CARBOPLATIN [Suspect]
     Active Substance: CARBOPLATIN
     Indication: Non-small cell lung cancer
     Dosage: 6 AUC EVERY THREE WEEKS
     Route: 042
     Dates: start: 20210714, end: 20210714
  6. CARBOPLATIN [Suspect]
     Active Substance: CARBOPLATIN
     Dosage: 6 AUC EVERY THREE WEEKS
     Route: 042
     Dates: start: 20210804, end: 20210804
  7. CARBOPLATIN [Suspect]
     Active Substance: CARBOPLATIN
     Dosage: 6 AUC EVERY THREE WEEKS
     Route: 042
     Dates: start: 20210826, end: 20210826
  8. CARBOPLATIN [Suspect]
     Active Substance: CARBOPLATIN
     Dosage: 6 AUC EVERY THREE WEEKS
     Route: 042
     Dates: start: 20210916, end: 20210916
  9. INVESTIGATIONAL PRODUCT [Suspect]
     Active Substance: INVESTIGATIONAL PRODUCT
     Indication: Non-small cell lung cancer
     Dosage: 1500 MG, EVERY 3 WEEKS
     Route: 042
     Dates: start: 20210714, end: 20210714
  10. INVESTIGATIONAL PRODUCT [Suspect]
     Active Substance: INVESTIGATIONAL PRODUCT
     Dosage: 1500 MG, EVERY 3 WEEKS
     Route: 042
     Dates: start: 20210804, end: 20210804
  11. INVESTIGATIONAL PRODUCT [Suspect]
     Active Substance: INVESTIGATIONAL PRODUCT
     Dosage: 1500 MG, EVERY 3 WEEKS
     Route: 042
     Dates: start: 20210826, end: 20210826
  12. INVESTIGATIONAL PRODUCT [Suspect]
     Active Substance: INVESTIGATIONAL PRODUCT
     Dosage: 1500 MG, EVERY 3 WEEKS
     Route: 042
     Dates: start: 20210916, end: 20210916
  13. INVESTIGATIONAL PRODUCT [Suspect]
     Active Substance: INVESTIGATIONAL PRODUCT
     Dosage: 1500 MG, EVERY 3 WEEKS
     Route: 042
     Dates: start: 20211202, end: 20211202
  14. INVESTIGATIONAL PRODUCT [Suspect]
     Active Substance: INVESTIGATIONAL PRODUCT
     Dosage: 1500 MG, EVERY 3 WEEKS
     Route: 042
     Dates: start: 20211229, end: 20211229

REACTIONS (1)
  - Incision site complication [Recovered/Resolved]

NARRATIVE: CASE EVENT DATE: 20211104
